FAERS Safety Report 7348306-0 (Version None)
Quarter: 2011Q1

REPORT INFORMATION
  Report Type: 
  Country: None (occurrence: None)
  Receive Date: 20110311
  Receipt Date: 20110302
  Transmission Date: 20110831
  Serious: No
  Sender: FDA-Public Use
  Company Number: US-ELI_LILLY_AND_COMPANY-US201004004882

PATIENT
  Sex: Female

DRUGS (6)
  1. FORTEO [Suspect]
     Indication: OSTEOPOROSIS
     Dosage: 20 UG, DAILY (1/D)
     Route: 065
     Dates: start: 20100401
  2. SOMA [Concomitant]
  3. TRAZODONE HCL [Concomitant]
  4. DARVOCET [Concomitant]
  5. XANAX [Concomitant]
  6. FORTEO [Suspect]
     Dosage: 20 UG, DAILY (1/D)
     Route: 065

REACTIONS (9)
  - BREAST CALCIFICATIONS [None]
  - ARTHRALGIA [None]
  - MUSCLE SPASMS [None]
  - FALL [None]
  - PAIN IN EXTREMITY [None]
  - BONE PAIN [None]
  - TOOTH FRACTURE [None]
  - BREAST FIBROMA [None]
  - INFLUENZA LIKE ILLNESS [None]
